FAERS Safety Report 21735637 (Version 1)
Quarter: 2022Q4

REPORT INFORMATION
  Report Type: Spontaneous
  Country: US (occurrence: US)
  Receive Date: 20221215
  Receipt Date: 20221215
  Transmission Date: 20230113
  Serious: Yes (Other)
  Sender: FDA-Public Use
  Company Number: US-002147023-NVSC2022US287538

PATIENT
  Sex: Female

DRUGS (1)
  1. KYMRIAH [Suspect]
     Active Substance: TISAGENLECLEUCEL
     Indication: Acute lymphocytic leukaemia
     Dosage: 1 DOSAGE FORM, ONCE/SINGLE (1.8 E8 CAR POSITIVE T CELLS)
     Route: 042
     Dates: start: 20221116, end: 20221116

REACTIONS (1)
  - Disseminated intravascular coagulation [Unknown]

NARRATIVE: CASE EVENT DATE: 20221101
